FAERS Safety Report 10244951 (Version 1)
Quarter: 2014Q2

REPORT INFORMATION
  Report Type: Spontaneous
  Country: IN (occurrence: IN)
  Receive Date: 20140618
  Receipt Date: 20140618
  Transmission Date: 20141212
  Serious: Yes (Hospitalization, Other)
  Sender: FDA-Public Use
  Company Number: IN-WATSON-2014-13739

PATIENT
  Age: 30 Year
  Sex: Male

DRUGS (2)
  1. DISULFIRAM (UNKNOWN) [Suspect]
     Indication: ALCOHOLISM
     Dosage: 250 MG, QPM
     Route: 065
  2. AMITRIPTYLINE [Concomitant]
     Indication: HEADACHE
     Dosage: 50 MG, QPM
     Route: 065

REACTIONS (1)
  - Myoclonus [Recovered/Resolved]
